FAERS Safety Report 6424222-3 (Version None)
Quarter: 2009Q4

REPORT INFORMATION
  Report Type: 
  Country: None (occurrence: None)
  Receive Date: 20091102
  Receipt Date: 20091020
  Transmission Date: 20100525
  Serious: Yes (Hospitalization)
  Sender: FDA-Public Use
  Company Number: ES-AMGEN-UK358898

PATIENT
  Sex: Male

DRUGS (19)
  1. PANITUMUMAB [Suspect]
     Indication: SQUAMOUS CELL CARCINOMA
     Route: 042
     Dates: start: 20090708
  2. PANITUMUMAB - STUDY PROCEDURE [Suspect]
     Route: 050
     Dates: start: 20090708, end: 20090802
  3. RADIATION THERAPY [Suspect]
     Route: 050
     Dates: start: 20090708, end: 20090802
  4. BISOPROLOL [Concomitant]
     Route: 065
  5. ACETAMINOPHEN [Concomitant]
     Route: 065
  6. MYCOSTATIN [Concomitant]
     Route: 048
  7. OMEPRAZOLE [Concomitant]
     Route: 065
     Dates: start: 20090804, end: 20090805
  8. FLUCONAZOLE [Concomitant]
     Route: 042
     Dates: start: 20090804
  9. PIPERACILLIN AND TAZOBACTAM [Concomitant]
     Route: 042
     Dates: start: 20090804, end: 20090810
  10. DEXAMETHASONE [Concomitant]
     Route: 065
     Dates: start: 20090805, end: 20090808
  11. DEXCHLORPHENIRAMINE [Concomitant]
     Route: 065
     Dates: start: 20090805
  12. PANTOPRAZOLE [Concomitant]
     Route: 065
     Dates: start: 20090805, end: 20090808
  13. ENOXAPARIN SODIUM [Concomitant]
     Route: 058
     Dates: start: 20090805, end: 20090810
  14. LIDOCAINE [Concomitant]
     Route: 048
     Dates: start: 20090805
  15. METAMIZOLE [Concomitant]
     Route: 042
     Dates: start: 20090805
  16. CALCIUM [Concomitant]
     Route: 065
     Dates: start: 20090812
  17. SULFAMETHOXAZOLE AND TRIMETHOPRIM [Concomitant]
     Route: 065
     Dates: start: 20090812, end: 20090822
  18. VALACYCLOVIR HCL [Concomitant]
     Route: 065
     Dates: start: 20090812, end: 20090822
  19. UNSPECIFIED TOPICAL PRODUCT [Concomitant]
     Route: 061

REACTIONS (3)
  - INFLAMMATION [None]
  - MUCOSAL INFLAMMATION [None]
  - SKIN INFECTION [None]
